FAERS Safety Report 8446284 (Version 4)
Quarter: 2014Q1

REPORT INFORMATION
  Report Type: Spontaneous
  Country: JP (occurrence: None)
  Receive Date: 20120301
  Receipt Date: 20140130
  Transmission Date: 20141002
  Serious: Yes (Other)
  Sender: FDA-Public Use
  Company Number: 2010JP000200

PATIENT
  Age: 25 Year
  Sex: Female
  Weight: 40 kg

DRUGS (9)
  1. PROGRAF [Suspect]
     Indication: LUPUS NEPHRITIS
     Dosage: 3 MG, UNKNOWN/D ORAL
     Route: 048
     Dates: start: 20081210, end: 20110726
  2. PREDNISOLONE [Suspect]
     Indication: LUPUS NEPHRITIS
     Dosage: SEE IMAGE
     Route: 048
     Dates: start: 20081210, end: 20110726
  3. METHYLPREDNISOLONE (METHYLPREDNISOLONE) [Concomitant]
  4. ALFAROL (ALFACALCIDOL) [Concomitant]
  5. FERROMIA (FERROUS SODIUM CITRATE) [Concomitant]
  6. SIMVASTATIN [Concomitant]
  7. LOSARTAN POTASSIUM [Concomitant]
  8. BREDNIN (MIZORIBINE) [Concomitant]
  9. LIPITOR (ATORVASTATIN CALCIUM) [Concomitant]

REACTIONS (9)
  - Maternal exposure during pregnancy [None]
  - Intentional drug misuse [None]
  - Lupus nephritis [None]
  - Liver disorder [None]
  - Abortion induced [None]
  - Hyperlipidaemia [None]
  - Gamma-glutamyltransferase increased [None]
  - Premature labour [None]
  - Alanine aminotransferase increased [None]
